FAERS Safety Report 11896218 (Version 1)
Quarter: 2016Q1

REPORT INFORMATION
  Report Type: Spontaneous
  Country: US (occurrence: US)
  Receive Date: 20160107
  Receipt Date: 20160107
  Transmission Date: 20160526
  Serious: Yes (Other)
  Sender: FDA-Public Use
  Company Number: US-ROCHE-1478155

PATIENT
  Age: 58 Year
  Sex: Male
  Weight: 83.08 kg

DRUGS (24)
  1. RITUXAN [Suspect]
     Active Substance: RITUXIMAB
     Indication: RHEUMATOID ARTHRITIS
     Dosage: 2 DOSES
     Route: 042
     Dates: start: 20090601, end: 20140723
  2. ATORVASTATIN [Concomitant]
     Active Substance: ATORVASTATIN
     Dosage: NIGHTLY
     Route: 048
  3. HYDROXYCHLOROQUINE [Concomitant]
     Active Substance: HYDROXYCHLOROQUINE
  4. MAXIPIME [Concomitant]
     Active Substance: CEFEPIME HYDROCHLORIDE
     Route: 042
  5. PANTOPRAZOLE [Concomitant]
     Active Substance: PANTOPRAZOLE SODIUM
     Dosage: 30 MIN BEFORE BREAKFAST AND MEAL
     Route: 048
  6. POTASSIUM CHLORIDE. [Concomitant]
     Active Substance: POTASSIUM CHLORIDE
     Dosage: 120 MEQ
     Route: 048
  7. AMLODIPINE [Concomitant]
     Active Substance: AMLODIPINE BESYLATE
     Route: 048
  8. EPLERENONE. [Concomitant]
     Active Substance: EPLERENONE
     Route: 048
  9. ACETAMINOPHEN. [Concomitant]
     Active Substance: ACETAMINOPHEN
  10. LIPITOR [Concomitant]
     Active Substance: ATORVASTATIN CALCIUM
     Indication: LIPIDS
  11. OXYCODONE/ACETAMINOPHEN [Concomitant]
     Active Substance: ACETAMINOPHEN\OXYCODONE HYDROCHLORIDE
  12. OMEPRAZOLE. [Concomitant]
     Active Substance: OMEPRAZOLE
     Indication: GASTROOESOPHAGEAL REFLUX DISEASE
     Route: 065
  13. CELECOXIB. [Concomitant]
     Active Substance: CELECOXIB
  14. ONDANSETRON [Concomitant]
     Active Substance: ONDANSETRON
  15. PREDNISONE. [Concomitant]
     Active Substance: PREDNISONE
     Indication: RHEUMATOID ARTHRITIS
     Dosage: AM
     Route: 048
     Dates: start: 2002
  16. NORVASC [Concomitant]
     Active Substance: AMLODIPINE BESYLATE
     Indication: BLOOD PRESSURE MEASUREMENT
  17. METHOTREXATE [Suspect]
     Active Substance: METHOTREXATE
     Indication: RHEUMATOID ARTHRITIS
     Route: 048
     Dates: start: 2005, end: 20141016
  18. ASPIRIN. [Concomitant]
     Active Substance: ASPIRIN
     Dosage: DAILY
     Route: 048
  19. FILGRASTIM [Concomitant]
     Active Substance: FILGRASTIM
     Dosage: 480 MCQ
     Route: 058
  20. TIMOLOL HEMIHYDRATE [Concomitant]
     Dosage: 1 DROP RIGHT EYE
     Route: 065
  21. PLAQUENIL [Suspect]
     Active Substance: HYDROXYCHLOROQUINE SULFATE
     Indication: RHEUMATOID ARTHRITIS
     Route: 048
     Dates: start: 1997, end: 20141016
  22. ENOXAPARIN [Concomitant]
     Active Substance: ENOXAPARIN
     Route: 058
  23. FOLIC ACID. [Concomitant]
     Active Substance: FOLIC ACID
     Route: 048
  24. PREDNISONE. [Concomitant]
     Active Substance: PREDNISONE
     Route: 048

REACTIONS (1)
  - Neutropenia [Unknown]
